FAERS Safety Report 4951395-1 (Version None)
Quarter: 2006Q1

REPORT INFORMATION
  Report Type: 
  Country: None (occurrence: None)
  Receive Date: 20060317
  Receipt Date: 20060314
  Transmission Date: 20060701
  Serious: Yes (Disabling, Other)
  Sender: FDA-Public Use
  Company Number: HQWYE338315MAR06

PATIENT
  Age: 87 Year
  Sex: Male

DRUGS (5)
  1. AMIODARONE (AMIODARONE, UNSPEC) [Suspect]
     Indication: VENTRICULAR TACHYCARDIA
     Dosage: 200 MG 1X PER 1 DAY
     Route: 048
     Dates: start: 20010101, end: 20051204
  2. ASPIRIN [Concomitant]
  3. RAMIPRIL [Concomitant]
  4. FUROSEMIDE [Concomitant]
  5. SPIRONOLACTONE [Concomitant]

REACTIONS (5)
  - COORDINATION ABNORMAL [None]
  - HEADACHE [None]
  - PHOTOPHOBIA [None]
  - VERTIGO [None]
  - VOMITING [None]
